FAERS Safety Report 7908628-9 (Version None)
Quarter: 2011Q4

REPORT INFORMATION
  Report Type: 
  Country: None (occurrence: None)
  Receive Date: 20111111
  Receipt Date: 20111104
  Transmission Date: 20120403
  Serious: Yes (Other)
  Sender: FDA-Public Use
  Company Number: PHEH2011US008691

PATIENT
  Sex: Female

DRUGS (2)
  1. RECLAST [Suspect]
     Dosage: UNK UKN, UNK
     Route: 042
  2. CALCIUM [Concomitant]
     Dosage: UNK UKN, UNK

REACTIONS (4)
  - RIB FRACTURE [None]
  - UPPER LIMB FRACTURE [None]
  - PAIN IN JAW [None]
  - CLAVICLE FRACTURE [None]
